FAERS Safety Report 9233856 (Version 2)
Quarter: 2013Q2

REPORT INFORMATION
  Report Type: Spontaneous
  Country: US (occurrence: None)
  Receive Date: 20121031
  Receipt Date: 20130107
  Transmission Date: 20140414
  Serious: Yes (Other)
  Sender: FDA-Public Use
  Company Number: PHEH2012US013342

PATIENT
  Age: 63 Year
  Sex: Female

DRUGS (6)
  1. GILENYA [Suspect]
     Indication: MULTIPLE SCLEROSIS
     Route: 048
     Dates: start: 201206, end: 20120705
  2. BACLOFEN (BACLOFEN) [Concomitant]
  3. CLONAZEPAM (CLONAZEPAM) [Concomitant]
  4. MELOXICAM (MELOXICAM) [Concomitant]
  5. LEXAPRO (ESCITALOPRAM OXALATE) [Concomitant]
  6. ZOCOR (SIMVASTATIN) [Concomitant]

REACTIONS (2)
  - Heart rate decreased [None]
  - Asthenia [None]
